FAERS Safety Report 9119594 (Version 1)
Quarter: 2013Q1

REPORT INFORMATION
  Report Type: Spontaneous
  Country: GB (occurrence: GB)
  Receive Date: 20130226
  Receipt Date: 20130226
  Transmission Date: 20140127
  Serious: Yes (Life-Threatening)
  Sender: FDA-Public Use
  Company Number: GB-ASTRAZENECA-2013SE12528

PATIENT
  Age: 59 Year
  Sex: Female

DRUGS (11)
  1. PROPOFOL [Suspect]
     Indication: GENERAL ANAESTHESIA
     Dosage: 2.5 MCG/ML
     Route: 042
  2. PROPOFOL [Suspect]
     Indication: GENERAL ANAESTHESIA
     Dosage: 1 MCG/ML
     Route: 042
  3. REMIFENTANIL [Suspect]
     Indication: GENERAL ANAESTHESIA
     Dosage: 2 NG/ML
     Route: 042
  4. VOLPLEX [Suspect]
     Dosage: 200 ML (5 ML/ KG) BY RAPID INTRAVENOUS INJECTION USING 50 ML SYRINGE
     Route: 042
  5. GLYCOPYRRONIUM [Concomitant]
  6. ASPIRIN [Concomitant]
  7. CLOPIDOGREL [Concomitant]
  8. BETA-BLOCKER [Concomitant]
  9. CALCIUM ANTAGONIST [Concomitant]
  10. BRONCHODILATOR [Concomitant]
  11. CISATRACURIUM [Concomitant]
     Dosage: 6 MG

REACTIONS (2)
  - Circulatory collapse [Recovered/Resolved]
  - Anaphylactic reaction [Recovered/Resolved]
